FAERS Safety Report 5156898-5 (Version None)
Quarter: 2006Q3

REPORT INFORMATION
  Report Type: 
  Country: None (occurrence: None)
  Receive Date: 20060918
  Receipt Date: 20060710
  Transmission Date: 20061208
  Serious: Yes (Other)
  Sender: FDA-Public Use
  Company Number: US-JNJFOC-20060604070

PATIENT
  Age: 27 Year
  Sex: Female
  Weight: 62.5964 kg

DRUGS (2)
  1. TOPAMAX [Suspect]
     Indication: CONVULSION
     Dosage: 200 MG, IN 1 DAY, ORAL ; 300 MG, IN 1 DAY, ORAL
     Route: 048
     Dates: start: 20010101, end: 20060317
  2. TOPAMAX [Suspect]
     Indication: CONVULSION
     Dosage: 200 MG, IN 1 DAY, ORAL ; 300 MG, IN 1 DAY, ORAL
     Route: 048
     Dates: start: 20060317

REACTIONS (2)
  - CONVULSION [None]
  - DRUG EXPOSURE DURING PREGNANCY [None]
